FAERS Safety Report 7505397-1 (Version None)
Quarter: 2011Q2

REPORT INFORMATION
  Report Type: 
  Country: None (occurrence: None)
  Receive Date: 20110526
  Receipt Date: 20091122
  Transmission Date: 20111010
  Serious: Yes (Death, Other)
  Sender: FDA-Public Use
  Company Number: US-BAYER-200939877NA

PATIENT
  Age: 69 Year
  Sex: Female
  Weight: 66 kg

DRUGS (28)
  1. COREG [Concomitant]
     Dosage: 3.125
     Route: 048
     Dates: start: 20040223, end: 20040223
  2. DIURIL [Concomitant]
     Dosage: 500MG
     Route: 042
     Dates: start: 20050305, end: 20050305
  3. HEPARIN [Concomitant]
     Dosage: 1:1000 30ML (3)
     Route: 042
     Dates: start: 20050305, end: 20050305
  4. PROTAMINE SULFATE [Concomitant]
     Dosage: 500 MG, UNK
     Route: 042
     Dates: start: 20050305, end: 20050305
  5. TRASYLOL [Suspect]
     Indication: CORONARY ARTERY BYPASS
     Dosage: UNK
     Route: 042
     Dates: start: 20040305
  6. PRINIVIL [Concomitant]
     Dosage: 5 MG
     Route: 048
     Dates: start: 20040223, end: 20040223
  7. REGULAR INSULIN [Concomitant]
     Dosage: UNK
     Route: 042
     Dates: start: 20050305, end: 20050313
  8. CALCIUM CHLORIDE [Concomitant]
     Dosage: 1 GRAM
     Dates: start: 20050305, end: 20050305
  9. TOPROL-XL [Concomitant]
     Dosage: 50 MG, QD
     Route: 048
  10. IMDUR [Concomitant]
     Dosage: UNK
     Route: 048
     Dates: start: 20040227, end: 20040303
  11. ACETYLSALICYLIC ACID SRT [Concomitant]
     Dosage: 81 MG
     Route: 048
     Dates: start: 20040223
  12. NITROGLYCERIN [Concomitant]
     Dosage: TITRATED
     Route: 042
     Dates: start: 20050305, end: 20050305
  13. MAGNESIUM SULFATE [Concomitant]
     Dosage: 10 ML
     Route: 042
     Dates: start: 20050305, end: 20050305
  14. NIPRIDE [Concomitant]
     Dosage: 50 MG
     Route: 042
     Dates: start: 20050305, end: 20050310
  15. NORVASC [Concomitant]
     Dosage: 10 MG, QD
     Route: 048
     Dates: start: 20040224
  16. LOPRESSOR [Concomitant]
     Dosage: 50 MG
     Route: 048
     Dates: start: 20040223
  17. LEVAQUIN [Concomitant]
     Dosage: 250 MG
     Route: 042
     Dates: start: 20040225, end: 20040303
  18. KEFUROX [Concomitant]
     Dosage: 1.5 GRAMS
     Route: 042
     Dates: start: 20050305, end: 20050307
  19. VANCOMYCIN [Concomitant]
     Dosage: 1 GRAM
     Route: 042
     Dates: start: 20050307, end: 20050310
  20. VERSED [Concomitant]
     Dosage: 20 MG
     Route: 042
     Dates: start: 20050305, end: 20050305
  21. COZAAR [Concomitant]
     Dosage: 50 MG, BID
     Route: 048
     Dates: start: 20040224, end: 20040316
  22. LOVENOX [Concomitant]
     Dosage: UNK
     Dates: start: 20040223, end: 20040226
  23. GLUCOTROL XL [Concomitant]
     Dosage: UNK
     Route: 048
     Dates: start: 20040224, end: 20040225
  24. VISIPAQUE [IODINE,IODIXANOL] [Concomitant]
     Dosage: UNK
     Route: 022
     Dates: start: 20040227, end: 20040227
  25. LASIX [Concomitant]
     Dosage: UNK
     Route: 042
     Dates: start: 20040225
  26. INTEGRILIN [Concomitant]
     Dosage: UNK
     Route: 042
     Dates: start: 20040223, end: 20040302
  27. NATRECOR [Concomitant]
     Dosage: UNK
     Route: 042
     Dates: start: 20040223, end: 20040225
  28. LIPITOR [Concomitant]
     Dosage: 10 MG DAILY
     Route: 048
     Dates: start: 20040224, end: 20040225

REACTIONS (14)
  - MULTI-ORGAN FAILURE [None]
  - RENAL INJURY [None]
  - ANHEDONIA [None]
  - EMOTIONAL DISTRESS [None]
  - ANXIETY [None]
  - UNEVALUABLE EVENT [None]
  - PAIN [None]
  - PSYCHIATRIC SYMPTOM [None]
  - DEATH [None]
  - RENAL IMPAIRMENT [None]
  - RENAL FAILURE [None]
  - INJURY [None]
  - STRESS [None]
  - FEAR [None]
